FAERS Safety Report 12433875 (Version 1)
Quarter: 2016Q2

REPORT INFORMATION
  Report Type: Spontaneous
  Country: US (occurrence: US)
  Receive Date: 20160603
  Receipt Date: 20160603
  Transmission Date: 20160815
  Serious: No
  Sender: FDA-Public Use
  Company Number: US-009507513-1606USA001647

PATIENT
  Age: 47 Year
  Sex: Female

DRUGS (16)
  1. VITAMIN D3 [Concomitant]
     Active Substance: CHOLECALCIFEROL
     Dosage: 1000 IU/ 25 MCG, ONCE A DAY
     Dates: start: 200905
  2. ADDERALL [Concomitant]
     Active Substance: AMPHETAMINE ASPARTATE\AMPHETAMINE SULFATE\DEXTROAMPHETAMINE SACCHARATE\DEXTROAMPHETAMINE SULFATE
     Indication: ATTENTION DEFICIT/HYPERACTIVITY DISORDER
     Dosage: 60 MG, TWICE A DAY
     Dates: start: 201002
  3. VICODIN [Concomitant]
     Active Substance: ACETAMINOPHEN\HYDROCODONE BITARTRATE
     Dosage: UNK, TWICE A DAY
     Dates: start: 201212
  4. PHOSLO [Concomitant]
     Active Substance: CALCIUM ACETATE
     Dosage: 462 MG, BID
     Dates: start: 200905
  5. SUNDOWN NATURALS B12 [Concomitant]
     Dosage: 500 MICROGRAM, ONCE A DAY
     Route: 060
     Dates: start: 200905
  6. DIABETIC INSULIN PUMP [Concomitant]
     Dosage: UNK, DAILY
     Dates: start: 197107
  7. ALPHAGAN P [Concomitant]
     Active Substance: BRIMONIDINE TARTRATE
     Dosage: UNK, TWICE A DAY
     Dates: start: 201412
  8. SINGULAIR [Suspect]
     Active Substance: MONTELUKAST SODIUM
     Dosage: UNK, ONCE A DAY
     Route: 048
     Dates: start: 200802
  9. PRINIVIL [Suspect]
     Active Substance: LISINOPRIL
     Dosage: UNK, ONCE A DAY
     Route: 048
     Dates: start: 200905
  10. RELPAX [Concomitant]
     Active Substance: ELETRIPTAN HYDROBROMIDE
     Indication: MIGRAINE
     Dosage: 40 MG, AS NEEDED
     Dates: start: 20160402, end: 20160403
  11. XANAX [Concomitant]
     Active Substance: ALPRAZOLAM
     Dosage: UNK, BID
     Dates: start: 201002
  12. PRAVASTATIN [Concomitant]
     Active Substance: PRAVASTATIN\PRAVASTATIN SODIUM
     Dosage: UNK, QD
     Dates: start: 200905
  13. ECOTRIN [Concomitant]
     Active Substance: ASPIRIN
     Dosage: UNK, ONCE A DAY
     Dates: start: 201602
  14. RELPAX [Concomitant]
     Active Substance: ELETRIPTAN HYDROBROMIDE
     Indication: HEADACHE
  15. PREDNISOLONE ACETATE. [Suspect]
     Active Substance: PREDNISOLONE ACETATE
     Dosage: UNK, TWICE A DAY
     Route: 047
     Dates: start: 201412
  16. INSYNC [Concomitant]
     Dosage: UNK, ONCE A DAY
     Dates: start: 200905

REACTIONS (11)
  - Heart rate increased [Recovered/Resolved]
  - Dyspepsia [Recovered/Resolved]
  - Asthenia [Recovered/Resolved]
  - Nausea [Recovered/Resolved]
  - Diarrhoea [Recovered/Resolved]
  - Abdominal pain [Recovered/Resolved]
  - Vomiting [Recovered/Resolved]
  - Discomfort [Recovered/Resolved]
  - Abdominal pain upper [Recovered/Resolved]
  - Flushing [Recovered/Resolved]
  - Dizziness [Recovered/Resolved]

NARRATIVE: CASE EVENT DATE: 20160402
